FAERS Safety Report 8618980-7 (Version None)
Quarter: 2012Q3

REPORT INFORMATION
  Report Type: 
  Country: None (occurrence: None)
  Receive Date: 20120810
  Receipt Date: 20120726
  Transmission Date: 20120928
  Serious: Yes (Other)
  Sender: FDA-Public Use
  Company Number: TPA2012A02815

PATIENT
  Age: 60 Year
  Sex: Male
  Weight: 125.6464 kg

DRUGS (4)
  1. GLUCOTROL [Concomitant]
  2. ACTOS [Suspect]
     Indication: TYPE 2 DIABETES MELLITUS
     Dosage: 15 MG
     Dates: start: 20080724, end: 20111001
  3. METFFORMIN HYDROCHLORIDE [Concomitant]
  4. GLUCOPHAGE [Concomitant]

REACTIONS (3)
  - URINARY TRACT INFECTION [None]
  - BLADDER CANCER [None]
  - PROSTATE CANCER [None]
